FAERS Safety Report 23218019 (Version 1)
Quarter: 2023Q4

REPORT INFORMATION
  Report Type: Report from Study
  Country: CN (occurrence: CN)
  Receive Date: 20231122
  Receipt Date: 20231122
  Transmission Date: 20240109
  Serious: Yes (Hospitalization)
  Sender: FDA-Public Use
  Company Number: CN-Eisai-EC-2023-153187

PATIENT
  Age: 60 Year
  Sex: Female
  Weight: 51.5 kg

DRUGS (5)
  1. LENVATINIB [Suspect]
     Active Substance: LENVATINIB
     Indication: Hepatic cancer
     Route: 048
     Dates: start: 20210112, end: 20210610
  2. TORIPALIMAB [Suspect]
     Active Substance: TORIPALIMAB
     Indication: Hepatic cancer
     Dosage: 240 MG/PLACEBO
     Dates: start: 20210112, end: 20210608
  3. Trivitamin B [Concomitant]
     Indication: Nausea
     Dates: start: 20210517, end: 20210609
  4. HERBALS [Concomitant]
     Active Substance: HERBALS
     Indication: Haemorrhoids
  5. OMEPRAZOLE [Concomitant]
     Active Substance: OMEPRAZOLE

REACTIONS (1)
  - Lower gastrointestinal haemorrhage [Recovered/Resolved]

NARRATIVE: CASE EVENT DATE: 20210610
